FAERS Safety Report 23832057 (Version 1)
Quarter: 2024Q2

REPORT INFORMATION
  Report Type: Spontaneous
  Country: US (occurrence: None)
  Receive Date: 20240507
  Receipt Date: 20240507
  Transmission Date: 20240717
  Serious: Yes (Hospitalization)
  Sender: FDA-Public Use
  Company Number: None

PATIENT
  Sex: Female

DRUGS (3)
  1. MEKTOVI [Suspect]
     Active Substance: BINIMETINIB
     Indication: Metastases to lung
     Dosage: FREQUENCY : TWICE A DAY;?
     Route: 048
     Dates: start: 202209
  2. MEKTOVI [Suspect]
     Active Substance: BINIMETINIB
     Indication: Malignant melanoma
  3. BRAFTOVI [Suspect]
     Active Substance: ENCORAFENIB
     Indication: Malignant melanoma
     Dosage: FREQUENCY : DAILY;?
     Route: 048
     Dates: start: 202209

REACTIONS (1)
  - Brain neoplasm [None]
